FAERS Safety Report 9559452 (Version 1)
Quarter: 2013Q3

REPORT INFORMATION
  Report Type: Spontaneous
  Country: None (occurrence: IN)
  Receive Date: 20130927
  Receipt Date: 20130927
  Transmission Date: 20140515
  Serious: Yes (Hospitalization)
  Sender: FDA-Public Use
  Company Number: IN-ACCORD-019561

PATIENT
  Age: 48 Year
  Sex: Female

DRUGS (3)
  1. ANASTROZOLE [Suspect]
     Indication: BREAST CANCER
  2. ZOLEDRONIC ACID [Concomitant]
     Indication: OSTEOPENIA
     Dosage: 4 MG IN 100 ML SALINE
  3. CALCIUM [Concomitant]

REACTIONS (1)
  - Tardive dyskinesia [Unknown]
